FAERS Safety Report 6106832-6 (Version None)
Quarter: 2009Q1

REPORT INFORMATION
  Report Type: 
  Country: None (occurrence: None)
  Receive Date: 20090304
  Receipt Date: 20090209
  Transmission Date: 20090719
  Serious: Yes (Hospitalization)
  Sender: FDA-Public Use
  Company Number: 2009EU000585

PATIENT
  Age: 71 Year
  Sex: Female

DRUGS (10)
  1. PROGRAF [Suspect]
     Indication: RENAL TRANSPLANT
     Dosage: 8 MG, /D, ORAL
     Route: 048
     Dates: start: 20081104, end: 20081120
  2. PREDNISONE TAB [Suspect]
     Indication: RENAL TRANSPLANT
     Dosage: 20 MG, /D, ORAL
     Route: 048
     Dates: start: 20081110, end: 20081120
  3. CELLCEPT [Suspect]
     Indication: RENAL TRANSPLANT
     Dosage: 1 G, /D, ORAL
     Route: 048
     Dates: start: 20081104, end: 20081120
  4. OMEPRAZOLE [Concomitant]
  5. FLECAINIDE ACETATE [Concomitant]
  6. DARBEPOETIN ALFA         (DARBEPOETIN ALFA) [Concomitant]
  7. CALCIUM CARBONATE [Concomitant]
  8. REPAGLINIDE [Concomitant]
  9. CALCITRIOL [Concomitant]
  10. SULFAMETHXAZOL/TRIMETOPRIM  (SULFAMETHOXAZOLE, TRIMETHOPRIM) [Concomitant]

REACTIONS (2)
  - DEEP VEIN THROMBOSIS [None]
  - LYMPHOCELE [None]
